FAERS Safety Report 18664189 (Version 1)
Quarter: 2020Q4

REPORT INFORMATION
  Report Type: Spontaneous
  Country: US (occurrence: US)
  Receive Date: 20201225
  Receipt Date: 20201225
  Transmission Date: 20210114
  Serious: Yes (Hospitalization, Other)
  Sender: FDA-Public Use
  Company Number: US-LUPIN PHARMACEUTICALS INC.-2020-08786

PATIENT
  Age: 62 Year
  Sex: Male

DRUGS (8)
  1. LINEZOLID. [Suspect]
     Active Substance: LINEZOLID
     Indication: THERMAL BURN
  2. PROPOFOL. [Suspect]
     Active Substance: PROPOFOL
     Indication: THERMAL BURN
     Dosage: UNK
     Route: 048
  3. PROPOFOL. [Suspect]
     Active Substance: PROPOFOL
     Indication: VASOPLEGIA SYNDROME
  4. FENTANYL. [Suspect]
     Active Substance: FENTANYL
     Indication: THERMAL BURN
     Dosage: UNK
     Route: 048
  5. LINEZOLID. [Suspect]
     Active Substance: LINEZOLID
     Indication: VASOPLEGIA SYNDROME
     Dosage: UNK
     Route: 048
  6. METHYLENE BLUE. [Suspect]
     Active Substance: METHYLENE BLUE
     Indication: VASOPLEGIA SYNDROME
  7. METHYLENE BLUE. [Suspect]
     Active Substance: METHYLENE BLUE
     Indication: THERMAL BURN
     Dosage: UNK
     Route: 048
  8. FENTANYL. [Suspect]
     Active Substance: FENTANYL
     Indication: THERMAL BURN

REACTIONS (1)
  - Serotonin syndrome [Unknown]
